FAERS Safety Report 11184215 (Version 1)
Quarter: 2015Q2

REPORT INFORMATION
  Report Type: Spontaneous
  Country: US (occurrence: US)
  Receive Date: 20150612
  Receipt Date: 20150612
  Transmission Date: 20150821
  Serious: No
  Sender: FDA-Public Use
  Company Number: US-PFIZER INC-2015193877

PATIENT
  Age: 52 Year
  Sex: Male
  Weight: 66 kg

DRUGS (4)
  1. CORGARD [Suspect]
     Active Substance: NADOLOL
     Indication: MITRAL VALVE PROLAPSE
     Dosage: 20MG TABLET, ONE HALF TABLET IN THE MORNING AND ONE HALF TABLET IN THE EVENING
  2. VITAMIN D [Concomitant]
     Active Substance: CHOLECALCIFEROL
  3. ASPIRIN. [Concomitant]
     Active Substance: ASPIRIN
     Dosage: LOW DOSE, ALTERNATE DAY
  4. PSYLLIUM [Concomitant]
     Active Substance: PLANTAGO SEED

REACTIONS (1)
  - Urticaria [Not Recovered/Not Resolved]

NARRATIVE: CASE EVENT DATE: 201505
